FAERS Safety Report 4310919-8 (Version None)
Quarter: 2004Q1

REPORT INFORMATION
  Report Type: 
  Country: None (occurrence: None)
  Receive Date: 20040302
  Receipt Date: 20040216
  Transmission Date: 20041129
  Serious: Yes (Death)
  Sender: FDA-Public Use
  Company Number: US-JNJFOC-20040203722

PATIENT
  Sex: Female

DRUGS (2)
  1. ULTRACET [Suspect]
     Dosage: ORAL
     Route: 048
  2. ULTRAM [Suspect]
     Dosage: ORAL
     Route: 048

REACTIONS (1)
  - DEATH [None]
